FAERS Safety Report 6322982-3 (Version None)
Quarter: 2009Q3

REPORT INFORMATION
  Report Type: 
  Country: None (occurrence: None)
  Receive Date: 20090824
  Receipt Date: 20090313
  Transmission Date: 20100115
  Serious: No
  Sender: FDA-Public Use
  Company Number: US-ABBOTT-09P-163-0562573-00

PATIENT
  Sex: Male

DRUGS (9)
  1. NIASPAN [Suspect]
     Indication: LOW DENSITY LIPOPROTEIN INCREASED
     Dosage: EVERY NIGHT
     Dates: start: 20090201
  2. NIASPAN [Suspect]
     Indication: HIGH DENSITY LIPOPROTEIN DECREASED
  3. METFORMIN HCL [Concomitant]
     Indication: DRUG USE FOR UNKNOWN INDICATION
  4. MOBIC [Concomitant]
     Indication: DRUG USE FOR UNKNOWN INDICATION
  5. NEXIUM [Concomitant]
     Indication: DRUG USE FOR UNKNOWN INDICATION
  6. PROVIGIL [Concomitant]
     Indication: DRUG USE FOR UNKNOWN INDICATION
  7. COUMADIN [Concomitant]
     Indication: DRUG USE FOR UNKNOWN INDICATION
  8. CRESTOR [Concomitant]
     Indication: DRUG USE FOR UNKNOWN INDICATION
  9. BLOOD PRESSURE MEDICATION UNKNOWN NAME [Concomitant]
     Indication: BLOOD PRESSURE

REACTIONS (2)
  - DIARRHOEA [None]
  - NAUSEA [None]
